FAERS Safety Report 25816832 (Version 2)
Quarter: 2025Q3

REPORT INFORMATION
  Report Type: Spontaneous
  Country: CN (occurrence: CN)
  Receive Date: 20250918
  Receipt Date: 20250926
  Transmission Date: 20251020
  Serious: Yes (Hospitalization, Other)
  Sender: ROCHE
  Company Number: CN-002147023-NVSC2025CN142795

PATIENT
  Age: 66 Year
  Sex: Female

DRUGS (3)
  1. XOLAIR [Suspect]
     Active Substance: OMALIZUMAB
     Indication: Asthma
     Dosage: 300 MG (INJECT) (ONCE EVERY 4 WEEKS)
     Route: 058
     Dates: start: 202506
  2. XOLAIR [Suspect]
     Active Substance: OMALIZUMAB
     Dosage: 300 MG (INJECT) (ONCE EVERY 4 WEEKS)
     Route: 058
     Dates: start: 202507
  3. XOLAIR [Suspect]
     Active Substance: OMALIZUMAB
     Dosage: 300 MG (INJECT) (ONCE EVERY 4 WEEKS)
     Route: 050
     Dates: start: 202508

REACTIONS (9)
  - Rash [Unknown]
  - Arthralgia [Unknown]
  - Oedema peripheral [Recovering/Resolving]
  - Cartilage injury [Unknown]
  - Muscular weakness [Unknown]
  - Bronchiectasis [Unknown]
  - Asthma-chronic obstructive pulmonary disease overlap syndrome [Unknown]
  - Emphysema [Unknown]
  - Tachypnoea [Recovering/Resolving]
